FAERS Safety Report 7073294-4 (Version None)
Quarter: 2010Q4

REPORT INFORMATION
  Report Type: 
  Country: None (occurrence: None)
  Receive Date: 20101029
  Receipt Date: 20100524
  Transmission Date: 20110411
  Serious: No
  Sender: FDA-Public Use
  Company Number: A0861051A

PATIENT
  Age: 46 Year
  Sex: Female

DRUGS (7)
  1. ADVAIR DISKUS 100/50 [Suspect]
     Indication: ASTHMA
     Dosage: 1PUFF TWICE PER DAY
     Route: 055
     Dates: start: 20080501
  2. ZOLOFT [Concomitant]
  3. BUSPAR [Concomitant]
  4. TRAZODONE [Concomitant]
  5. XANAX [Concomitant]
  6. NEXIUM [Concomitant]
  7. VENTOLIN [Concomitant]

REACTIONS (3)
  - CANDIDIASIS [None]
  - KIDNEY INFECTION [None]
  - URINARY RETENTION [None]
